FAERS Safety Report 6966178-0 (Version None)
Quarter: 2010Q3

REPORT INFORMATION
  Report Type: 
  Country: None (occurrence: None)
  Receive Date: 20100903
  Receipt Date: 20100824
  Transmission Date: 20110219
  Serious: Yes (Life-Threatening, Hospitalization, Other)
  Sender: FDA-Public Use
  Company Number: AU-ELI_LILLY_AND_COMPANY-AU201008000431

PATIENT
  Age: 31 Year
  Sex: Male

DRUGS (7)
  1. CYMBALTA [Suspect]
     Indication: DEPRESSION
     Dosage: 60 MG, DAILY (1/D)
     Route: 048
     Dates: start: 20100716, end: 20100728
  2. ACETAMINOPHEN AND CODEINE PHOSPHATE [Concomitant]
     Indication: PAIN
     Dosage: 8 D/F, DAILY (1/D)
  3. DUROTRAM [Concomitant]
     Indication: PAIN
     Dosage: 300 MG, DAILY (1/D)
  4. SOMAC [Concomitant]
  5. DIAZEPAM [Concomitant]
  6. ALCOHOL [Concomitant]
  7. ACETAMINOPHEN [Concomitant]
     Dosage: 1 G, 4/D

REACTIONS (1)
  - HEPATITIS [None]
